FAERS Safety Report 9887822 (Version 1)
Quarter: 2013Q4

REPORT INFORMATION
  Report Type: Spontaneous
  Country: US (occurrence: None)
  Receive Date: 20131223
  Receipt Date: 20131223
  Transmission Date: 20140711
  Serious: No
  Sender: FDA-Public Use
  Company Number: 218697LEO

PATIENT
  Age: 71 Year
  Sex: Male

DRUGS (8)
  1. PICATO (0.015%, GEL) [Suspect]
     Indication: ACTINIC KERATOSIS
     Dosage: 1 IN 1 D
     Route: 061
     Dates: start: 20120823, end: 20120825
  2. FENOFIBRATE [Concomitant]
  3. VYTORIN [Concomitant]
  4. TOPROL [Concomitant]
  5. HYDROXYZINE [Suspect]
  6. AMLODIPINE [Concomitant]
  7. ISOSORBIDE [Concomitant]
  8. ASPIRIN [Concomitant]

REACTIONS (2)
  - Application site burn [None]
  - Application site erythema [None]
